FAERS Safety Report 6775033-0 (Version None)
Quarter: 2010Q2

REPORT INFORMATION
  Report Type: 
  Country: None (occurrence: None)
  Receive Date: 20100617
  Receipt Date: 20100614
  Transmission Date: 20101027
  Serious: Yes (Death)
  Sender: FDA-Public Use
  Company Number: A0865428A

PATIENT
  Age: 72 Year
  Sex: Female

DRUGS (1)
  1. AVANDIA [Suspect]
     Dosage: 8MG PER DAY
     Dates: start: 20040101, end: 20061214

REACTIONS (2)
  - DEATH [None]
  - MYOCARDIAL INFARCTION [None]
